FAERS Safety Report 19940705 (Version 1)
Quarter: 2021Q4

REPORT INFORMATION
  Report Type: Spontaneous
  Country: US (occurrence: US)
  Receive Date: 20211012
  Receipt Date: 20211012
  Transmission Date: 20220303
  Serious: No
  Sender: FDA-Public Use
  Company Number: US-SA-SAC20211005001185

PATIENT
  Age: 51 Year
  Sex: Female

DRUGS (4)
  1. AUBAGIO [Suspect]
     Active Substance: TERIFLUNOMIDE
     Indication: Multiple sclerosis
     Dosage: 14 MG, QD
     Route: 048
  2. DIETARY SUPPLEMENT [Suspect]
     Active Substance: DIETARY SUPPLEMENT
     Indication: Pain
  3. ESTRADIOL [Interacting]
     Active Substance: ESTRADIOL
  4. LAMOTRIGINE [Interacting]
     Active Substance: LAMOTRIGINE

REACTIONS (6)
  - Vomiting [Unknown]
  - Drug interaction [Unknown]
  - Nausea [Unknown]
  - Dizziness [Unknown]
  - Visual impairment [Unknown]
  - Pain [Unknown]

NARRATIVE: CASE EVENT DATE: 20211001
